FAERS Safety Report 9882501 (Version 1)
Quarter: 2014Q1

REPORT INFORMATION
  Report Type: Spontaneous
  Country: US (occurrence: US)
  Receive Date: 20140207
  Receipt Date: 20140207
  Transmission Date: 20141002
  Serious: Yes (Hospitalization, Disabling, Other)
  Sender: FDA-Public Use
  Company Number: US-BRISTOL-MYERS SQUIBB COMPANY-20107694

PATIENT
  Age: 57 Year
  Sex: Female
  Weight: 92.06 kg

DRUGS (3)
  1. ABATACEPT SUBQ INJECTION 125MG/ML [Suspect]
     Indication: RHEUMATOID ARTHRITIS
     Dosage: RESUMED:AUG13
     Route: 058
  2. IBUPROFEN [Concomitant]
  3. ARAVA [Concomitant]

REACTIONS (7)
  - Osteomyelitis [Unknown]
  - Pyrexia [Unknown]
  - Chills [Unknown]
  - Cellulitis [Unknown]
  - Rheumatoid nodule [Unknown]
  - Skin ulcer [Unknown]
  - Impaired healing [Unknown]
